FAERS Safety Report 6213646-5 (Version None)
Quarter: 2009Q2

REPORT INFORMATION
  Report Type: 
  Country: None (occurrence: None)
  Receive Date: 20090601
  Receipt Date: 20090527
  Transmission Date: 20091009
  Serious: Yes (Other)
  Sender: FDA-Public Use
  Company Number: 2009SP010644

PATIENT
  Age: 45 Year
  Sex: Male
  Weight: 60 kg

DRUGS (5)
  1. PEG-INTRON [Suspect]
     Indication: HEPATITIS C
     Dosage: 100; 80; 40 MCG;QW;SC
     Route: 058
     Dates: start: 20090226, end: 20090226
  2. PEG-INTRON [Suspect]
     Indication: HEPATITIS C
     Dosage: 100; 80; 40 MCG;QW;SC
     Route: 058
     Dates: start: 20090305, end: 20090305
  3. PEG-INTRON [Suspect]
     Indication: HEPATITIS C
     Dosage: 100; 80; 40 MCG;QW;SC
     Route: 058
     Dates: start: 20090311, end: 20090511
  4. REBETOL [Suspect]
     Indication: HEPATITIS C
     Dosage: 800 MG;QD;PO
     Route: 048
     Dates: start: 20090226, end: 20090517
  5. JUZEN-TAIHO-TO [Concomitant]

REACTIONS (9)
  - DISORIENTATION [None]
  - DIZZINESS [None]
  - HALLUCINATION [None]
  - HALLUCINATION, AUDITORY [None]
  - HYPOAESTHESIA [None]
  - MALAISE [None]
  - NASOPHARYNGITIS [None]
  - SPEECH DISORDER [None]
  - TOXIC ENCEPHALOPATHY [None]
